FAERS Safety Report 14995049 (Version 1)
Quarter: 2018Q2

REPORT INFORMATION
  Report Type: Spontaneous
  Country: US (occurrence: US)
  Receive Date: 20180611
  Receipt Date: 20180611
  Transmission Date: 20180711
  Serious: No
  Sender: FDA-Public Use
  Company Number: US-TEVA-2018-US-902090

PATIENT
  Age: 70 Year
  Sex: Female

DRUGS (1)
  1. ATENOLOL. [Suspect]
     Active Substance: ATENOLOL
     Indication: TACHYCARDIA
     Dosage: 12.5 MILLIGRAM DAILY; CUTTING THE TABLET IN HALF
     Route: 065

REACTIONS (3)
  - Wrong technique in product usage process [Unknown]
  - Fatigue [Unknown]
  - Gait disturbance [Unknown]
